FAERS Safety Report 21142289 (Version 1)
Quarter: 2022Q3

REPORT INFORMATION
  Report Type: Spontaneous
  Country: GB (occurrence: GB)
  Receive Date: 20220728
  Receipt Date: 20220728
  Transmission Date: 20221027
  Serious: Yes (Other)
  Sender: FDA-Public Use
  Company Number: GB-MHRA-MED-202207192149569310-HRFVT

PATIENT
  Age: 14 Year
  Sex: Female
  Weight: 64 kg

DRUGS (4)
  1. ISOTRETINOIN [Suspect]
     Active Substance: ISOTRETINOIN
     Indication: Acne
     Dosage: 60 MILLIGRAM, QD
     Route: 065
     Dates: start: 20211210
  2. ORTHO EVRA [Concomitant]
     Active Substance: ETHINYL ESTRADIOL\NORELGESTROMIN
     Indication: Contraception
     Dosage: UNK
     Route: 065
     Dates: start: 20220620, end: 20220630
  3. FEXOFENADINE [Concomitant]
     Active Substance: FEXOFENADINE HYDROCHLORIDE
     Indication: Seasonal allergy
     Dosage: UNK
     Route: 065
     Dates: start: 20220601
  4. Rigevidon [Concomitant]
     Indication: Contraception
     Dosage: UNK
     Route: 065
     Dates: start: 20220310, end: 20220610

REACTIONS (6)
  - Depression [Not Recovered/Not Resolved]
  - Lip dry [Recovering/Resolving]
  - Dry skin [Not Recovered/Not Resolved]
  - Rash [Not Recovered/Not Resolved]
  - Pruritus [Not Recovered/Not Resolved]
  - Dry eye [Not Recovered/Not Resolved]
